FAERS Safety Report 9392057 (Version 1)
Quarter: 2013Q3

REPORT INFORMATION
  Report Type: Spontaneous
  Country: AR (occurrence: None)
  Receive Date: 20130705
  Receipt Date: 20130705
  Transmission Date: 20140515
  Serious: Yes (Hospitalization)
  Sender: FDA-Public Use
  Company Number: ENTC2013-0235

PATIENT
  Sex: Female

DRUGS (1)
  1. STALEVO [Suspect]
     Indication: PARKINSON^S DISEASE
     Dosage: 1000MG (200MG, 5 IN 1 D)
     Route: 048

REACTIONS (2)
  - Jaw fracture [None]
  - Fall [None]
